FAERS Safety Report 24303819 (Version 1)
Quarter: 2024Q3

REPORT INFORMATION
  Report Type: Spontaneous
  Country: US (occurrence: US)
  Receive Date: 20240910
  Receipt Date: 20240910
  Transmission Date: 20241016
  Serious: No
  Sender: FRESENIUS KABI
  Company Number: US-FreseniusKabi-FK202413429

PATIENT
  Age: 73 Year
  Sex: Male

DRUGS (3)
  1. MICAFUNGIN [Suspect]
     Active Substance: MICAFUNGIN SODIUM
     Indication: Candida infection
     Dosage: FORM OF ADMINISTRATION: INJECTION?ROUTE: IV INFUSION VIA PICC LINE?100 MG DAILY?PLAN TO INCREASED DO
     Dates: start: 202405
  2. UNSPECIFIED INGREDIENT [Concomitant]
     Active Substance: UNSPECIFIED INGREDIENT
     Indication: Hypertension
  3. anti-cholesterol [Concomitant]
     Indication: Blood cholesterol increased

REACTIONS (1)
  - Drug ineffective [Unknown]
